FAERS Safety Report 23842201 (Version 4)
Quarter: 2024Q3

REPORT INFORMATION
  Report Type: Spontaneous
  Country: US (occurrence: US)
  Receive Date: 20240510
  Receipt Date: 20240701
  Transmission Date: 20241017
  Serious: Yes (Disabling, Other)
  Sender: SANOFI AVENTIS
  Company Number: US-SANOFI-02030465

PATIENT
  Age: 54 Year
  Sex: Female

DRUGS (1)
  1. LANTUS SOLOSTAR [Suspect]
     Active Substance: INSULIN GLARGINE
     Indication: Type 1 diabetes mellitus
     Dosage: 45 IU, BID
     Route: 065
     Dates: start: 2013

REACTIONS (10)
  - Illness [Unknown]
  - Product dose omission issue [Unknown]
  - Diabetic coma [Unknown]
  - Malaise [Unknown]
  - Dysphemia [Unknown]
  - Hyperhidrosis [Unknown]
  - Dysstasia [Unknown]
  - Visual impairment [Unknown]
  - Device defective [Unknown]
  - Inappropriate schedule of product administration [Unknown]

NARRATIVE: CASE EVENT DATE: 20240401
